FAERS Safety Report 8006249-3 (Version None)
Quarter: 2011Q4

REPORT INFORMATION
  Report Type: 
  Country: None (occurrence: None)
  Receive Date: 20111226
  Receipt Date: 20111216
  Transmission Date: 20120403
  Serious: Yes (Other)
  Sender: FDA-Public Use
  Company Number: PHHY2011US111543

PATIENT

DRUGS (3)
  1. VANCOMYCIN HCL [Suspect]
     Indication: OSTEOMYELITIS
  2. CUBICIN [Suspect]
     Indication: OSTEOMYELITIS
  3. CIPROFLOXACIN [Suspect]
     Indication: OSTEOMYELITIS

REACTIONS (2)
  - OSTEOMYELITIS [None]
  - TREATMENT FAILURE [None]
